FAERS Safety Report 19201981 (Version 1)
Quarter: 2021Q2

REPORT INFORMATION
  Report Type: Other
  Country: US (occurrence: US)
  Receive Date: 20210430
  Receipt Date: 20210430
  Transmission Date: 20210717
  Serious: No
  Sender: FDA-Public Use
  Company Number: US-NOSTRUM LABORATORIES, INC.-2110071

PATIENT
  Age: 82 Year
  Sex: Male

DRUGS (2)
  1. VASCEPA [Concomitant]
     Active Substance: ICOSAPENT ETHYL
     Route: 048
  2. METFORMIN HYDROCHLORIDE EXTENDED?RELEASE [Suspect]
     Active Substance: METFORMIN HYDROCHLORIDE
     Indication: TYPE 2 DIABETES MELLITUS
     Route: 048

REACTIONS (1)
  - Diarrhoea [Unknown]
